FAERS Safety Report 4644067-4 (Version None)
Quarter: 2005Q2

REPORT INFORMATION
  Report Type: 
  Country: None (occurrence: None)
  Receive Date: 20050425
  Receipt Date: 20050406
  Transmission Date: 20051028
  Serious: Yes (Death)
  Sender: FDA-Public Use
  Company Number: JP-ROCHE-401130

PATIENT
  Age: 72 Year
  Sex: Male

DRUGS (4)
  1. TAMIFLU [Suspect]
     Route: 048
     Dates: start: 20050401, end: 20050401
  2. VOLTAREN [Suspect]
     Indication: PYREXIA
     Route: 054
     Dates: start: 20050401, end: 20050401
  3. NAFTOPIDIL [Concomitant]
     Route: 048
     Dates: start: 20050310, end: 20050401
  4. CRAVIT [Concomitant]
     Route: 048
     Dates: start: 20050329, end: 20050331

REACTIONS (9)
  - ABDOMINAL PAIN [None]
  - ACTIVITIES OF DAILY LIVING IMPAIRED [None]
  - CARDIO-RESPIRATORY ARREST [None]
  - ENCEPHALOPATHY [None]
  - HYPERTENSION [None]
  - INTESTINAL ISCHAEMIA [None]
  - SUDDEN DEATH [None]
  - THROMBOSIS [None]
  - URINARY TRACT INFECTION [None]
